FAERS Safety Report 14202571 (Version 1)
Quarter: 2017Q4

REPORT INFORMATION
  Report Type: Spontaneous
  Country: US (occurrence: US)
  Receive Date: 20171118
  Receipt Date: 20171118
  Transmission Date: 20180321
  Serious: No
  Sender: FDA-Public Use
  Company Number: US-SHIRE-US201720994

PATIENT

DRUGS (1)
  1. XIIDRA [Suspect]
     Active Substance: LIFITEGRAST
     Indication: DRY EYE
     Dosage: ONE GTT OU , 2X/DAY:BID
     Route: 047

REACTIONS (6)
  - Product packaging issue [Unknown]
  - Instillation site pruritus [Unknown]
  - Headache [Unknown]
  - Instillation site reaction [Unknown]
  - Instillation site pain [Unknown]
  - Photophobia [Unknown]
